FAERS Safety Report 8299102-1 (Version None)
Quarter: 2012Q2

REPORT INFORMATION
  Report Type: 
  Country: None (occurrence: None)
  Receive Date: 20120419
  Receipt Date: 20120411
  Transmission Date: 20120825
  Serious: Yes (Other)
  Sender: FDA-Public Use
  Company Number: US-ASTRAZENECA-2012SE06316

PATIENT
  Age: 77 Year
  Sex: Female

DRUGS (5)
  1. XELODA [Concomitant]
     Indication: NEOPLASM MALIGNANT
     Dosage: EVERY OTHER WEEK
  2. METOPROLOL TARTRATE [Suspect]
  3. METOPROLOL SUCCINATE [Suspect]
     Route: 048
  4. HERCEPTIN [Concomitant]
  5. CEFTIN [Concomitant]
     Indication: NEOPLASM MALIGNANT
     Dosage: DRIP EVERY TWO WEEKS
     Route: 048

REACTIONS (4)
  - NEOPLASM MALIGNANT [None]
  - DRUG PRESCRIBING ERROR [None]
  - PALPITATIONS [None]
  - DRUG INTOLERANCE [None]
